FAERS Safety Report 12545627 (Version 1)
Quarter: 2016Q3

REPORT INFORMATION
  Report Type: Spontaneous
  Country: BE (occurrence: BE)
  Receive Date: 20160711
  Receipt Date: 20160711
  Transmission Date: 20161109
  Serious: Yes (Other)
  Sender: FDA-Public Use
  Company Number: BE-BAYER-2016-130062

PATIENT
  Age: 56 Year
  Sex: Male

DRUGS (1)
  1. BETAFERON [Suspect]
     Active Substance: INTERFERON BETA-1B
     Indication: RELAPSING-REMITTING MULTIPLE SCLEROSIS
     Dosage: UNK
     Dates: start: 2012

REACTIONS (2)
  - Therapy non-responder [None]
  - Multiple sclerosis [None]

NARRATIVE: CASE EVENT DATE: 2016
